FAERS Safety Report 11044366 (Version 1)
Quarter: 2015Q2

REPORT INFORMATION
  Report Type: Spontaneous
  Country: IT (occurrence: None)
  Receive Date: 20150415
  Receipt Date: 20150415
  Transmission Date: 20150821
  Serious: Yes (Other)
  Sender: FDA-Public Use
  Company Number: 2015JUB00099

PATIENT
  Age: 46 Year
  Sex: Male

DRUGS (3)
  1. METHYLPREDNISOLONE (METHYLPREDNISOLONE) [Suspect]
     Active Substance: METHYLPREDNISOLONE
     Indication: ENDOCRINE OPHTHALMOPATHY
     Route: 042
  2. OMEPRAZOLE. [Concomitant]
     Active Substance: OMEPRAZOLE
  3. PREDNISONE (PREDNISONE) UNKNOWN [Suspect]
     Active Substance: PREDNISONE
     Route: 048

REACTIONS (3)
  - Withdrawal syndrome [None]
  - Liver injury [None]
  - Autoimmune hepatitis [None]
